FAERS Safety Report 9449848 (Version 1)
Quarter: 2013Q3

REPORT INFORMATION
  Report Type: Spontaneous
  Country: CZ (occurrence: CZ)
  Receive Date: 20130809
  Receipt Date: 20130809
  Transmission Date: 20140515
  Serious: Yes (Life-Threatening, Hospitalization, Other)
  Sender: FDA-Public Use
  Company Number: CZ-JNJFOC-20130802337

PATIENT
  Age: 35 Year
  Sex: Female
  Weight: 52 kg

DRUGS (3)
  1. SPORANOX [Suspect]
     Indication: PRODUCT USED FOR UNKNOWN INDICATION
     Route: 048
     Dates: start: 20130729, end: 20130729
  2. NITROFURANTOIN [Suspect]
     Indication: PRODUCT USED FOR UNKNOWN INDICATION
     Route: 065
     Dates: start: 20130728, end: 20130729
  3. IBUPROFEN [Concomitant]
     Dosage: 400MG
     Route: 048
     Dates: start: 20130729, end: 20130729

REACTIONS (3)
  - Dermatitis allergic [Unknown]
  - Chest discomfort [Unknown]
  - Dyspnoea [Unknown]
